FAERS Safety Report 13579017 (Version 1)
Quarter: 2017Q2

REPORT INFORMATION
  Report Type: Spontaneous
  Country: GB (occurrence: GB)
  Receive Date: 20170524
  Receipt Date: 20170524
  Transmission Date: 20170830
  Serious: No
  Sender: FDA-Public Use
  Company Number: GB-JAZZ-2017-GB-005506

PATIENT
  Sex: Female

DRUGS (2)
  1. XYREM [Suspect]
     Active Substance: SODIUM OXYBATE
     Indication: PRODUCT USED FOR UNKNOWN INDICATION
     Dosage: 3.5 G, UNK
     Route: 048
  2. XYREM [Suspect]
     Active Substance: SODIUM OXYBATE
     Dosage: 3.75G, BID
     Route: 048

REACTIONS (8)
  - Wrong technique in product usage process [Unknown]
  - Dysarthria [Unknown]
  - Respiratory rate decreased [Unknown]
  - Drug effect incomplete [Unknown]
  - Product taste abnormal [Unknown]
  - Malaise [Unknown]
  - Dyspnoea [Unknown]
  - Product quality issue [Unknown]
